FAERS Safety Report 8789178 (Version 1)
Quarter: 2012Q4

REPORT INFORMATION
  Report Type: 
  Country: US (occurrence: None)
  Receive Date: 20120907
  Receipt Date: 20120907
  Transmission Date: 20130627
  Serious: Yes (Hospitalization)
  Sender: FDA-Public Use
  Company Number: None

PATIENT
  Sex: Male
  Weight: 90 kg

DRUGS (1)
  1. DAUNORUBICIN [Suspect]
     Dates: end: 20120806

REACTIONS (4)
  - Pyrexia [None]
  - Dyspnoea [None]
  - Atrial fibrillation [None]
  - Tachycardia [None]
